FAERS Safety Report 22655069 (Version 1)
Quarter: 2023Q2

REPORT INFORMATION
  Report Type: Spontaneous
  Country: US (occurrence: None)
  Receive Date: 20230628
  Receipt Date: 20230628
  Transmission Date: 20230722
  Serious: Yes (Life-Threatening, Hospitalization)
  Sender: FDA-Public Use
  Company Number: None

PATIENT
  Age: 44 Year
  Sex: Male
  Weight: 87.1 kg

DRUGS (1)
  1. OXALIPLATIN [Suspect]
     Active Substance: OXALIPLATIN

REACTIONS (6)
  - Hypotension [None]
  - Defaecation urgency [None]
  - Blood lactic acid increased [None]
  - Troponin increased [None]
  - White blood cell count increased [None]
  - Hypersensitivity [None]

NARRATIVE: CASE EVENT DATE: 20230605
